FAERS Safety Report 5960187-6 (Version None)
Quarter: 2008Q4

REPORT INFORMATION
  Report Type: 
  Country: None (occurrence: None)
  Receive Date: 20081107
  Receipt Date: 20080324
  Transmission Date: 20090506
  Serious: Yes (Other)
  Sender: FDA-Public Use
  Company Number: 2008BH002813

PATIENT
  Age: 15 Year
  Sex: Female

DRUGS (3)
  1. SUPRANE [Suspect]
     Indication: GENERAL ANAESTHESIA
     Dosage: INH
     Route: 055
  2. PROPOFOL [Suspect]
     Indication: GENERAL ANAESTHESIA
  3. ALFENTANIL [Concomitant]

REACTIONS (2)
  - HYPERTENSION [None]
  - TACHYCARDIA [None]
